FAERS Safety Report 9206184 (Version 2)
Quarter: 2013Q4

REPORT INFORMATION
  Report Type: Spontaneous
  Country: US (occurrence: US)
  Receive Date: 20130403
  Receipt Date: 20131226
  Transmission Date: 20140711
  Serious: Yes (Other)
  Sender: FDA-Public Use
  Company Number: US-BAYER-2013-040082

PATIENT
  Age: 24 Year
  Sex: Female

DRUGS (7)
  1. YASMIN [Suspect]
     Dosage: UNK
     Route: 048
     Dates: start: 200106, end: 201010
  2. YAZ [Suspect]
     Dosage: UNK
     Route: 048
     Dates: start: 200106, end: 201010
  3. NABUMETONE [Concomitant]
     Dosage: 500 MG, UNK
  4. HYDROCODONE/ACETAMINOPHEN [Concomitant]
  5. PREVACID [Concomitant]
     Dosage: 30 MG, UNK
  6. PROVENTIL [Concomitant]
     Dosage: 90 MCG
  7. AZITHROMYCIN [Concomitant]
     Dosage: 250 MG, UNK

REACTIONS (7)
  - Cholelithiasis [None]
  - Cholecystitis chronic [None]
  - Injury [None]
  - Pain [None]
  - Emotional distress [None]
  - Anxiety [None]
  - Psychological trauma [None]
